FAERS Safety Report 15192310 (Version 1)
Quarter: 2018Q3

REPORT INFORMATION
  Report Type: Spontaneous
  Country: US (occurrence: US)
  Receive Date: 20180724
  Receipt Date: 20180724
  Transmission Date: 20181010
  Serious: Yes (Other)
  Sender: FDA-Public Use
  Company Number: US-BEH-2018092890

PATIENT
  Age: 85 Year
  Sex: Male
  Weight: 73.24 kg

DRUGS (38)
  1. CIPROFLOXACIN. [Concomitant]
     Active Substance: CIPROFLOXACIN
  2. PROLIA [Concomitant]
     Active Substance: DENOSUMAB
  3. PEPCID                             /00305201/ [Concomitant]
     Active Substance: ALUMINUM HYDROXIDE\MAGNESIUM CARBONATE
  4. ADVAIR HFA [Concomitant]
     Active Substance: FLUTICASONE PROPIONATE\SALMETEROL XINAFOATE
  5. ELIQUIS [Concomitant]
     Active Substance: APIXABAN
  6. CARVEDILOL. [Concomitant]
     Active Substance: CARVEDILOL
  7. VITAMIN B12 [Concomitant]
     Active Substance: CYANOCOBALAMIN
  8. SIMVASTATIN. [Concomitant]
     Active Substance: SIMVASTATIN
  9. VITAMIN D3 [Concomitant]
     Active Substance: CHOLECALCIFEROL
  10. DIPHENHYDRAMINE. [Concomitant]
     Active Substance: DIPHENHYDRAMINE
  11. LIDOCAINE. [Concomitant]
     Active Substance: LIDOCAINE
  12. MIRALAX [Concomitant]
     Active Substance: POLYETHYLENE GLYCOL 3350
  13. IPRATROPIUM/ALBUTEROL [Concomitant]
     Active Substance: ALBUTEROL\IPRATROPIUM
  14. SODIUM CHLORIDE. [Concomitant]
     Active Substance: SODIUM CHLORIDE
  15. VITAMIN C [Concomitant]
     Active Substance: ASCORBIC ACID
  16. CALTRATE                           /00944201/ [Concomitant]
     Active Substance: CALCIUM CARBONATE\CHOLECALCIFEROL
  17. GABAPENTIN. [Concomitant]
     Active Substance: GABAPENTIN
  18. DOCUSATE [Concomitant]
     Active Substance: DOCUSATE
  19. TYLENOL [Concomitant]
     Active Substance: ACETAMINOPHEN
  20. POTASSIUM [Concomitant]
     Active Substance: POTASSIUM
  21. CELEXA [Concomitant]
     Active Substance: CITALOPRAM HYDROBROMIDE
  22. VITAMINS WITH MINERALS [Concomitant]
     Active Substance: MINERALS\VITAMINS
  23. PROBIOTIC                          /06395501/ [Concomitant]
     Active Substance: BIFIDOBACTERIUM ANIMALIS LACTIS
  24. ZEMAIRA [Suspect]
     Active Substance: .ALPHA.1-PROTEINASE INHIBITOR HUMAN
     Indication: ALPHA-1 ANTI-TRYPSIN DEFICIENCY
     Dosage: 60 MG/KG, QW
     Route: 042
     Dates: start: 20160502
  25. LASIX [Concomitant]
     Active Substance: FUROSEMIDE
  26. PROAIR HFA [Concomitant]
     Active Substance: ALBUTEROL SULFATE
  27. HYDROXYPROPYL METHYLCELLULOSE [Concomitant]
     Active Substance: HYPROMELLOSES
  28. EPINEPHRINE. [Concomitant]
     Active Substance: EPINEPHRINE
  29. PREDNISONE. [Concomitant]
     Active Substance: PREDNISONE
  30. ZOSYN [Concomitant]
     Active Substance: PIPERACILLIN SODIUM\TAZOBACTAM SODIUM
  31. ASPIRIN. [Concomitant]
     Active Substance: ASPIRIN
  32. SYSTANE (HYPROMELLOSE 2910 (4000 MPA.S)) [Concomitant]
     Active Substance: HYPROMELLOSE 2910 (4000 MPA.S)
  33. NYSTATIN. [Concomitant]
     Active Substance: NYSTATIN
  34. ZEMAIRA [Suspect]
     Active Substance: .ALPHA.1-PROTEINASE INHIBITOR HUMAN
     Dosage: UNK
     Route: 042
  35. OXYGEN. [Concomitant]
     Active Substance: OXYGEN
  36. NYSTATIN AND TRIAMCINOLONE [Concomitant]
     Active Substance: NYSTATIN\TRIAMCINOLONE ACETONIDE
  37. LORAZEPAM. [Concomitant]
     Active Substance: LORAZEPAM
  38. MUCINEX [Concomitant]
     Active Substance: GUAIFENESIN

REACTIONS (2)
  - Respiratory distress [Unknown]
  - Malaise [Unknown]

NARRATIVE: CASE EVENT DATE: 20180716
